FAERS Safety Report 4269547-5 (Version None)
Quarter: 2004Q1

REPORT INFORMATION
  Report Type: 
  Country: None (occurrence: None)
  Receive Date: 20040113
  Receipt Date: 20040109
  Transmission Date: 20041129
  Serious: Yes (Other)
  Sender: FDA-Public Use
  Company Number: PHEH2004US00689

PATIENT
  Sex: Female

DRUGS (2)
  1. TRILEPTAL [Suspect]
     Indication: TRIGEMINAL NEURALGIA
     Dosage: 600 MG, UNK
  2. NEURONTIN [Suspect]
     Dosage: 3000 MG, UNK

REACTIONS (8)
  - AMNESIA [None]
  - BALANCE DISORDER [None]
  - CRYING [None]
  - DEPRESSED MOOD [None]
  - FALL [None]
  - NAUSEA [None]
  - SCREAMING [None]
  - VISUAL DISTURBANCE [None]
